FAERS Safety Report 8540995-8 (Version None)
Quarter: 2012Q3

REPORT INFORMATION
  Report Type: 
  Country: None (occurrence: None)
  Receive Date: 20120726
  Receipt Date: 20110809
  Transmission Date: 20120928
  Serious: No
  Sender: FDA-Public Use
  Company Number: US-ASTRAZENECA-2011SE47751

PATIENT
  Sex: Female

DRUGS (2)
  1. SEROQUEL [Suspect]
     Route: 048
  2. SEROQUEL [Suspect]
     Indication: WEIGHT INCREASED
     Route: 048

REACTIONS (3)
  - INCORRECT DOSE ADMINISTERED [None]
  - PSYCHOMOTOR HYPERACTIVITY [None]
  - DRUG PRESCRIBING ERROR [None]
